FAERS Safety Report 16162576 (Version 1)
Quarter: 2019Q2

REPORT INFORMATION
  Report Type: Spontaneous
  Country: US (occurrence: US)
  Receive Date: 20190404
  Receipt Date: 20190404
  Transmission Date: 20190711
  Serious: Yes (Other)
  Sender: FDA-Public Use
  Company Number: None

PATIENT
  Age: 69 Year
  Sex: Female
  Weight: 72 kg

DRUGS (4)
  1. CEPHALEXIN. [Suspect]
     Active Substance: CEPHALEXIN
     Indication: TOOTH ABSCESS
     Dosage: ?          QUANTITY:1 CAPSULE(S);?
     Route: 048
     Dates: start: 20190322, end: 20190327
  2. MULTIVITAMIN/MINERALS [Concomitant]
  3. JAKAFI [Concomitant]
     Active Substance: RUXOLITINIB
  4. NITROFURANTOIN  MONO 100 MG [Suspect]
     Active Substance: NITROFURANTOIN
     Indication: URINARY TRACT INFECTION
     Dosage: ?          QUANTITY:1 CAPSULE(S);?
     Route: 048
     Dates: start: 20190311, end: 20190315

REACTIONS (2)
  - Tendon rupture [None]
  - Anger [None]

NARRATIVE: CASE EVENT DATE: 20190325
